FAERS Safety Report 16133086 (Version 1)
Quarter: 2019Q1

REPORT INFORMATION
  Report Type: Spontaneous
  Country: TR (occurrence: TR)
  Receive Date: 20190329
  Receipt Date: 20190329
  Transmission Date: 20190418
  Serious: Yes (Other)
  Sender: FDA-Public Use
  Company Number: PHHY2019TR067448

PATIENT
  Age: 30 Year
  Sex: Female

DRUGS (1)
  1. TRIAMCINOLONE ACETONIDE. [Suspect]
     Active Substance: TRIAMCINOLONE ACETONIDE
     Indication: ALOPECIA AREATA
     Dosage: 1 ML, UNK
     Route: 058

REACTIONS (6)
  - Retinal ischaemia [Recovered/Resolved]
  - Ischaemia [Recovered/Resolved]
  - Retinal artery embolism [Recovered/Resolved]
  - Retinal artery occlusion [Recovered/Resolved]
  - Retinal degeneration [Not Recovered/Not Resolved]
  - Retinal haemorrhage [Recovered/Resolved]
